FAERS Safety Report 12954722 (Version 2)
Quarter: 2016Q4

REPORT INFORMATION
  Report Type: Report from Study
  Country: GR (occurrence: GR)
  Receive Date: 20161118
  Receipt Date: 20161121
  Transmission Date: 20170207
  Serious: No
  Sender: FDA-Public Use
  Company Number: GR-EMD SERONO-8118504

PATIENT
  Age: 45 Year
  Sex: Female

DRUGS (1)
  1. REBIF [Suspect]
     Active Substance: INTERFERON BETA-1A
     Indication: MULTIPLE SCLEROSIS
     Dates: start: 200609

REACTIONS (3)
  - Multiple sclerosis relapse [Unknown]
  - Syncope [Unknown]
  - Tongue biting [Unknown]

NARRATIVE: CASE EVENT DATE: 201610
